FAERS Safety Report 16319892 (Version 2)
Quarter: 2019Q4

REPORT INFORMATION
  Report Type: Report from Study
  Country: CO (occurrence: CO)
  Receive Date: 20190516
  Receipt Date: 20191209
  Transmission Date: 20200122
  Serious: Yes (Death, Hospitalization, Other)
  Sender: FDA-Public Use
  Company Number: PHHY2019CO091009

PATIENT
  Sex: Male

DRUGS (4)
  1. MEKINIST [Suspect]
     Active Substance: TRAMETINIB DIMETHYL SULFOXIDE
     Indication: METASTATIC MALIGNANT MELANOMA
     Dosage: 2 MG, QD
     Route: 048
     Dates: start: 201811, end: 20190412
  2. TAFINLAR [Suspect]
     Active Substance: DABRAFENIB MESYLATE
     Dosage: 2 DF, BID (2 DF IN MORNING AND 2 DF IN NIGHT)
     Route: 065
  3. VALPROIC ACID. [Concomitant]
     Active Substance: VALPROIC ACID
     Indication: PROPHYLAXIS
     Dosage: UNK
     Route: 065
     Dates: start: 20190507
  4. TAFINLAR [Suspect]
     Active Substance: DABRAFENIB MESYLATE
     Indication: METASTATIC MALIGNANT MELANOMA
     Dosage: 2 DF, TID
     Route: 048
     Dates: start: 201811, end: 20190412

REACTIONS (7)
  - Unresponsive to stimuli [Unknown]
  - Hemiplegia [Unknown]
  - Incorrect dose administered [Unknown]
  - Food refusal [Unknown]
  - Metastases to central nervous system [Fatal]
  - Ischaemia [Not Recovered/Not Resolved]
  - Inappropriate schedule of product administration [Unknown]
